FAERS Safety Report 4500319-X (Version None)
Quarter: 2004Q4

REPORT INFORMATION
  Report Type: 
  Country: None (occurrence: None)
  Receive Date: 20041109
  Receipt Date: 20041103
  Transmission Date: 20050328
  Serious: No
  Sender: FDA-Public Use
  Company Number: TAP2004Q01418

PATIENT
  Age: 43 Year
  Sex: Male

DRUGS (1)
  1. NAPRAPAC 500 (COPACKAGED) [Suspect]
     Indication: ARTHRALGIA
     Dosage: 1 CARD, 1 IN 1 WK, PER ORAL
     Route: 048
     Dates: start: 20041027, end: 20041103

REACTIONS (3)
  - CONSTIPATION [None]
  - POLLAKIURIA [None]
  - VISION BLURRED [None]
